FAERS Safety Report 6788129-4 (Version None)
Quarter: 2010Q2

REPORT INFORMATION
  Report Type: 
  Country: None (occurrence: None)
  Receive Date: 20100623
  Receipt Date: 20080108
  Transmission Date: 20101027
  Serious: No
  Sender: FDA-Public Use
  Company Number: US-PFIZER INC-2008002332

PATIENT
  Age: 38 Year
  Sex: Female
  Weight: 75 kg

DRUGS (2)
  1. DEPO-PROVERA SUSPENSION/INJ [Suspect]
     Indication: OFF LABEL USE
     Dosage: ONCE
     Route: 030
     Dates: start: 20070601, end: 20070601
  2. DEPO-PROVERA SUSPENSION/INJ [Suspect]
     Indication: MENSTRUAL DISCOMFORT

REACTIONS (8)
  - ABDOMINAL DISTENSION [None]
  - AMENORRHOEA [None]
  - FATIGUE [None]
  - FEELING ABNORMAL [None]
  - HOT FLUSH [None]
  - INSOMNIA [None]
  - PAIN [None]
  - WEIGHT INCREASED [None]
